FAERS Safety Report 8248534-6 (Version None)
Quarter: 2012Q1

REPORT INFORMATION
  Report Type: 
  Country: None (occurrence: None)
  Receive Date: 20120330
  Receipt Date: 20120314
  Transmission Date: 20120608
  Serious: Yes (Other)
  Sender: FDA-Public Use
  Company Number: US-BAXTER-2012BH006556

PATIENT
  Sex: Female

DRUGS (5)
  1. SEVOFLURANE, USP [Suspect]
     Route: 065
     Dates: start: 20071206, end: 20071206
  2. DEMEROL [Suspect]
     Route: 065
     Dates: start: 20071206
  3. PROPOFOL [Suspect]
     Route: 065
     Dates: start: 20071206
  4. ROCURONIUM BROMIDE [Suspect]
     Route: 065
     Dates: start: 20071206
  5. FENTANYL [Suspect]
     Route: 065
     Dates: start: 20071206

REACTIONS (6)
  - BRAIN INJURY [None]
  - BALANCE DISORDER [None]
  - TINNITUS [None]
  - VISION BLURRED [None]
  - HEADACHE [None]
  - HYPOAESTHESIA [None]
